FAERS Safety Report 18346118 (Version 1)
Quarter: 2020Q4

REPORT INFORMATION
  Report Type: Spontaneous
  Country: FR (occurrence: FR)
  Receive Date: 20201005
  Receipt Date: 20201005
  Transmission Date: 20210114
  Serious: Yes (Life-Threatening)
  Sender: FDA-Public Use
  Company Number: FR-PFIZER INC-2020382068

PATIENT
  Age: 10 Year
  Sex: Male
  Weight: 40 kg

DRUGS (1)
  1. ATRACURIUM BESILATE [Suspect]
     Active Substance: ATRACURIUM BESYLATE
     Indication: INDUCTION OF ANAESTHESIA
     Dosage: 1 MG/KG, SINGLE
     Route: 042
     Dates: start: 20200902, end: 20200902

REACTIONS (2)
  - Bronchospasm [Recovered/Resolved]
  - Hypotension [Recovered/Resolved]

NARRATIVE: CASE EVENT DATE: 20200902
